FAERS Safety Report 9334934 (Version 1)
Quarter: 2013Q2

REPORT INFORMATION
  Report Type: Spontaneous
  Country: US (occurrence: US)
  Receive Date: 20130606
  Receipt Date: 20130606
  Transmission Date: 20140414
  Serious: No
  Sender: FDA-Public Use
  Company Number: US-AMGEN-USASP2013036023

PATIENT
  Sex: Female

DRUGS (2)
  1. XGEVA [Suspect]
     Indication: METASTASES TO BONE
  2. SUTENT [Concomitant]

REACTIONS (4)
  - Myalgia [Unknown]
  - Arthralgia [Unknown]
  - Muscle spasms [Unknown]
  - Pain in extremity [Unknown]
